FAERS Safety Report 14948268 (Version 6)
Quarter: 2018Q3

REPORT INFORMATION
  Report Type: Spontaneous
  Country: US (occurrence: US)
  Receive Date: 20180529
  Receipt Date: 20180705
  Transmission Date: 20181010
  Serious: No
  Sender: FDA-Public Use
  Company Number: US-PFIZER INC-2018217728

PATIENT
  Sex: Female
  Weight: 104 kg

DRUGS (2)
  1. METHOTREXATE SODIUM. [Suspect]
     Active Substance: METHOTREXATE SODIUM
     Dosage: 12.5 MG, WEEKLY [FOR 3 WEEKS]
     Route: 058
  2. METHOTREXATE SODIUM. [Suspect]
     Active Substance: METHOTREXATE SODIUM
     Dosage: UNK, WEEKLY

REACTIONS (4)
  - Incorrect route of drug administration [Unknown]
  - Dizziness [Recovering/Resolving]
  - Drug ineffective [Unknown]
  - Migraine [Recovering/Resolving]
